FAERS Safety Report 7176707-2 (Version None)
Quarter: 2010Q4

REPORT INFORMATION
  Report Type: 
  Country: None (occurrence: None)
  Receive Date: 20101216
  Receipt Date: 20101216
  Transmission Date: 20110411
  Serious: Yes (Other)
  Sender: FDA-Public Use
  Company Number: None

PATIENT
  Age: 29 Year
  Sex: Female
  Weight: 28.8034 kg

DRUGS (2)
  1. HUMIRA [Suspect]
     Indication: HIDRADENITIS
     Dosage: 40 MG. Q 2 WEEKS SQ
     Route: 058
     Dates: start: 20100101, end: 20101101
  2. HUMIRA [Suspect]
     Indication: PSORIASIS
     Dosage: 40 MG. Q 2 WEEKS SQ
     Route: 058
     Dates: start: 20100101, end: 20101101

REACTIONS (1)
  - HODGKIN'S DISEASE [None]
